APPROVED DRUG PRODUCT: IOSAT
Active Ingredient: POTASSIUM IODIDE
Strength: 130MG
Dosage Form/Route: TABLET;ORAL
Application: N018664 | Product #001
Applicant: ANBEX INC
Approved: Oct 14, 1982 | RLD: Yes | RS: Yes | Type: OTC